FAERS Safety Report 10034559 (Version 2)
Quarter: 2014Q2

REPORT INFORMATION
  Report Type: Report from Study
  Country: OM (occurrence: OM)
  Receive Date: 20140325
  Receipt Date: 20140408
  Transmission Date: 20141212
  Serious: Yes (Hospitalization)
  Sender: FDA-Public Use
  Company Number: OM-INCYTE CORPORATION-2014IN000643

PATIENT
  Sex: Male
  Weight: 49 kg

DRUGS (2)
  1. INC424 [Suspect]
     Dosage: 20 MG, BID
     Route: 048
  2. INC424 [Suspect]
     Dosage: 10 MG, BID
     Route: 048

REACTIONS (2)
  - Post procedural haemorrhage [Unknown]
  - Thrombocytopenia [Recovering/Resolving]
